FAERS Safety Report 15302579 (Version 1)
Quarter: 2018Q3

REPORT INFORMATION
  Report Type: Spontaneous
  Country: US (occurrence: US)
  Receive Date: 20180821
  Receipt Date: 20180821
  Transmission Date: 20181010
  Serious: No
  Sender: FDA-Public Use
  Company Number: US-BAYER-US-2006-021073

PATIENT
  Age: 43 Year
  Sex: Female

DRUGS (2)
  1. BETASERON [Suspect]
     Active Substance: INTERFERON BETA-1B
     Dosage: 8 MIU, EVERY 2D
     Route: 058
     Dates: start: 20060525
  2. BETASERON [Suspect]
     Active Substance: INTERFERON BETA-1B
     Dosage: 0.25 MG, QOD

REACTIONS (2)
  - Injection site bruising [Not Recovered/Not Resolved]
  - Product container seal issue [None]

NARRATIVE: CASE EVENT DATE: 20060529
